APPROVED DRUG PRODUCT: TAZVERIK
Active Ingredient: TAZEMETOSTAT HYDROBROMIDE
Strength: EQ 200MG BASE
Dosage Form/Route: TABLET;ORAL
Application: N211723 | Product #001
Applicant: EPIZYME INC
Approved: Jan 23, 2020 | RLD: Yes | RS: Yes | Type: RX

PATENTS:
Patent 9889138 | Expires: Oct 16, 2035
Patent 10155002 | Expires: Sep 12, 2031
Patent 10245269 | Expires: Apr 11, 2033
Patent 9688665 | Expires: Aug 22, 2034
Patent 9549931 | Expires: Sep 12, 2031
Patent 9855275 | Expires: Sep 12, 2031
Patent 10420775 | Expires: Sep 12, 2031
Patent 10369155 | Expires: Oct 16, 2035
Patent 11052093 | Expires: Sep 12, 2031
Patent 9889138 | Expires: Oct 16, 2035
Patent 9889138 | Expires: Oct 16, 2035
Patent 8765732 | Expires: Sep 12, 2031
Patent 8765732 | Expires: Sep 12, 2031
Patent 9549931 | Expires: Sep 12, 2031
Patent 9549931 | Expires: Sep 12, 2031
Patent 9334527 | Expires: Sep 12, 2031
Patent 9333217 | Expires: Sep 12, 2031
Patent 8691507 | Expires: Sep 12, 2031
Patent 9394283 | Expires: Apr 11, 2033
Patent 9394283 | Expires: Apr 11, 2033
Patent 9175331 | Expires: Sep 12, 2031
Patent 8895245 | Expires: Sep 12, 2031
Patent 9949999 | Expires: Sep 12, 2031
Patent 10245269 | Expires: Apr 11, 2033
Patent 10245269 | Expires: Apr 11, 2033
Patent 10369155 | Expires: Oct 16, 2035
Patent 10369155 | Expires: Oct 16, 2035
Patent 10420775 | Expires: Sep 12, 2031
Patent 10420775 | Expires: Sep 12, 2031
Patent 12161645 | Expires: Sep 12, 2031
Patent 12162865 | Expires: Jun 12, 2034
Patent 12168016 | Expires: Sep 12, 2031
Patent 12168016 | Expires: Sep 12, 2031
Patent 12168014 | Expires: May 3, 2038
Patent 12168014 | Expires: May 3, 2038
Patent 12168014 | Expires: May 3, 2038
Patent 11491163 | Expires: Apr 11, 2033
Patent 11491163 | Expires: Apr 11, 2033
Patent 11491163 | Expires: Apr 11, 2033
Patent 11052093 | Expires: Sep 12, 2031
Patent 11052093 | Expires: Sep 12, 2031
Patent 10786511 | Expires: Dec 19, 2035
Patent 9090562 | Expires: Sep 12, 2031
Patent 12168015 | Expires: Sep 12, 2031
Patent 8410088 | Expires: Jan 23, 2034
Patent 10821113 | Expires: Apr 11, 2033

EXCLUSIVITY:
Code: ODE-299 | Date: Jan 23, 2027
Code: ODE-314 | Date: Jun 18, 2027